FAERS Safety Report 4577071-5 (Version None)
Quarter: 2005Q1

REPORT INFORMATION
  Report Type: 
  Country: None (occurrence: None)
  Receive Date: 20050210
  Receipt Date: 20050201
  Transmission Date: 20050727
  Serious: Yes (Life-Threatening, Hospitalization)
  Sender: FDA-Public Use
  Company Number: NO-MERCK-0502NOR00017

PATIENT
  Age: 61 Year
  Sex: Male

DRUGS (4)
  1. VIOXX [Suspect]
     Indication: BACK PAIN
     Route: 048
     Dates: start: 20030101, end: 20041001
  2. CELECOXIB [Suspect]
     Indication: BACK PAIN
     Route: 048
  3. ASPIRIN AND MAGNESIUM OXIDE [Concomitant]
     Indication: HYPERTENSION
     Route: 048
  4. HYDROCHLOROTHIAZIDE AND LOSARTAN POTASSIUM [Concomitant]
     Indication: HYPERTENSION
     Route: 048

REACTIONS (1)
  - ACUTE MYOCARDIAL INFARCTION [None]
